FAERS Safety Report 9527878 (Version 1)
Quarter: 2013Q3

REPORT INFORMATION
  Report Type: Spontaneous
  Country: US (occurrence: US)
  Receive Date: 20130917
  Receipt Date: 20130917
  Transmission Date: 20140515
  Serious: Yes (Death)
  Sender: FDA-Public Use
  Company Number: US-PFIZER INC-2013266327

PATIENT
  Age: 49 Year
  Sex: Female

DRUGS (1)
  1. RAPAMUNE [Suspect]
     Indication: LUNG NEOPLASM MALIGNANT
     Dosage: 2 MG, UNK
     Dates: start: 20130531

REACTIONS (2)
  - Drug ineffective for unapproved indication [Fatal]
  - Lung neoplasm malignant [Fatal]
